FAERS Safety Report 11069359 (Version 2)
Quarter: 2015Q3

REPORT INFORMATION
  Report Type: Report from Study
  Country: US (occurrence: US)
  Receive Date: 20150427
  Receipt Date: 20150821
  Transmission Date: 20151125
  Serious: Yes (Other)
  Sender: FDA-Public Use
  Company Number: US-GILEAD-2015-0150514

PATIENT
  Age: 68 Year
  Sex: Female

DRUGS (5)
  1. AMBRISENTAN [Suspect]
     Active Substance: AMBRISENTAN
     Indication: PULMONARY HYPERTENSION
  2. AMBRISENTAN [Suspect]
     Active Substance: AMBRISENTAN
     Indication: PULMONARY ARTERIAL HYPERTENSION
     Dosage: 10 MG, QD
     Route: 065
     Dates: start: 20141024
  3. ADCIRCA [Concomitant]
     Active Substance: TADALAFIL
  4. ORENITRAM [Concomitant]
     Active Substance: TREPROSTINIL
  5. AMBRISENTAN [Suspect]
     Active Substance: AMBRISENTAN
     Indication: ENDARTERECTOMY

REACTIONS (1)
  - Cellulitis [Unknown]
